FAERS Safety Report 15348767 (Version 2)
Quarter: 2018Q4

REPORT INFORMATION
  Report Type: Spontaneous
  Country: US (occurrence: US)
  Receive Date: 20180904
  Receipt Date: 20181206
  Transmission Date: 20190204
  Serious: Yes (Other)
  Sender: FDA-Public Use
  Company Number: US-OTSUKA-2018_022033

PATIENT
  Age: 47 Year
  Sex: Female

DRUGS (4)
  1. ARIPIPRAZOLE. [Concomitant]
     Active Substance: ARIPIPRAZOLE
     Indication: PRODUCT USED FOR UNKNOWN INDICATION
     Dosage: UNK
     Route: 065
     Dates: start: 20150917, end: 20151017
  2. ABILIFY [Suspect]
     Active Substance: ARIPIPRAZOLE
     Indication: FIBROMYALGIA
  3. ABILIFY [Suspect]
     Active Substance: ARIPIPRAZOLE
     Indication: BIPOLAR DISORDER
     Dosage: 2 MG, QD
     Route: 065
     Dates: start: 2008
  4. ABILIFY [Suspect]
     Active Substance: ARIPIPRAZOLE
     Indication: ANXIETY
     Dosage: 5 MG, QD
     Route: 065
     Dates: end: 201401

REACTIONS (34)
  - Injury [Unknown]
  - Eating disorder [Recovered/Resolved]
  - Gambling disorder [Recovering/Resolving]
  - Economic problem [Unknown]
  - Thyroid disorder [Unknown]
  - Back pain [Unknown]
  - Compulsive shopping [Recovered/Resolved]
  - Pain [Unknown]
  - Underdose [Unknown]
  - Suicide attempt [Recovered/Resolved]
  - Sinusitis [Unknown]
  - Compulsive hoarding [Recovered/Resolved]
  - Blood cholesterol abnormal [Unknown]
  - Cough [Unknown]
  - Obsessive-compulsive disorder [Recovered/Resolved]
  - Headache [Unknown]
  - Infertility [Unknown]
  - Irritable bowel syndrome [Unknown]
  - Anhedonia [Unknown]
  - Tachycardia [Unknown]
  - Sciatica [Unknown]
  - Chest discomfort [Unknown]
  - Anxiety [Unknown]
  - Vomiting [Unknown]
  - Suicidal ideation [Recovered/Resolved]
  - Diarrhoea [Unknown]
  - Nausea [Unknown]
  - Product use in unapproved indication [Unknown]
  - Raynaud^s phenomenon [Unknown]
  - Rhinitis allergic [Unknown]
  - Colitis [Unknown]
  - Abdominal pain [Unknown]
  - Condition aggravated [Recovering/Resolving]
  - Emotional distress [Unknown]

NARRATIVE: CASE EVENT DATE: 2009
